FAERS Safety Report 14872687 (Version 9)
Quarter: 2020Q2

REPORT INFORMATION
  Report Type: Report from Study
  Country: US (occurrence: US)
  Receive Date: 20180510
  Receipt Date: 20200407
  Transmission Date: 20200713
  Serious: Yes (Hospitalization)
  Sender: FDA-Public Use
  Company Number: US-ROCHE-2116497

PATIENT
  Age: 61 Year
  Sex: Male
  Weight: 95 kg

DRUGS (8)
  1. SOLU-MEDROL [Concomitant]
     Active Substance: METHYLPREDNISOLONE SODIUM SUCCINATE
     Indication: MENINGITIS
     Route: 065
     Dates: start: 20180428, end: 20180429
  2. CELEBREX [Concomitant]
     Active Substance: CELECOXIB
     Indication: PAIN
  3. DEXILANT [Concomitant]
     Active Substance: DEXLANSOPRAZOLE
     Indication: DYSPEPSIA
  4. NARATRIPTAN [Concomitant]
     Active Substance: NARATRIPTAN HYDROCHLORIDE
     Indication: HEADACHE
  5. COBIMETINIB. [Suspect]
     Active Substance: COBIMETINIB
     Indication: SQUAMOUS CELL CARCINOMA
     Dosage: 3 TABLETS OF 20 MG EACH) ORALLY ONCE A DAY ON DAYS 1-21 OF EACH 28-DAY CYCLE?LAST DOSE PRIOR TO SAE:
     Route: 048
     Dates: start: 20180410
  6. ATEZOLIZUMAB. [Suspect]
     Active Substance: ATEZOLIZUMAB
     Indication: SQUAMOUS CELL CARCINOMA
     Dosage: ON DAYS 1 AND 15 OF EACH 28-DAY CYCLE, LAST DOSE PRIOR TO SAE: 24/APR/2018
     Route: 042
     Dates: start: 20180410
  7. CEFEPIME [Concomitant]
     Active Substance: CEFEPIME HYDROCHLORIDE
     Indication: MENINGITIS
     Route: 065
     Dates: start: 20180428, end: 20180429
  8. CYMBALTA [Concomitant]
     Active Substance: DULOXETINE HYDROCHLORIDE
     Indication: ANXIETY

REACTIONS (1)
  - Immune-mediated encephalitis [Recovered/Resolved]

NARRATIVE: CASE EVENT DATE: 20180427
